FAERS Safety Report 8403529-4 (Version None)
Quarter: 2012Q2

REPORT INFORMATION
  Report Type: 
  Country: None (occurrence: None)
  Receive Date: 20120601
  Receipt Date: 20120522
  Transmission Date: 20120825
  Serious: Yes (Hospitalization)
  Sender: FDA-Public Use
  Company Number: US-ABBOTT-12P-163-0934597-00

PATIENT
  Sex: Female

DRUGS (7)
  1. HUMIRA [Suspect]
     Dates: start: 20120508
  2. AZATHIOPRINE [Concomitant]
     Indication: CROHN'S DISEASE
     Dosage: 2 TABLETS QHS
  3. AMBIEN [Concomitant]
     Indication: INSOMNIA
     Dosage: 10MG ; 1 TABLET QHS
  4. PROZAC [Concomitant]
     Indication: DEPRESSION
  5. HUMIRA [Suspect]
     Indication: CROHN'S DISEASE
     Route: 058
     Dates: start: 20120401, end: 20120401
  6. TRAZODONE HCL [Concomitant]
     Indication: INSOMNIA
     Dosage: 2 TABLETS QHS
  7. COLESTIPOL HYDROCHLORIDE [Concomitant]
     Indication: CROHN'S DISEASE
     Dosage: 2 TABLETS QHS

REACTIONS (6)
  - NAUSEA [None]
  - MALAISE [None]
  - INJECTION SITE PAIN [None]
  - VOMITING [None]
  - GASTROINTESTINAL DISORDER [None]
  - CLOSTRIDIAL INFECTION [None]
